FAERS Safety Report 13578239 (Version 2)
Quarter: 2017Q2

REPORT INFORMATION
  Report Type: Spontaneous
  Country: FR (occurrence: FR)
  Receive Date: 20170524
  Receipt Date: 20170525
  Transmission Date: 20170830
  Serious: Yes (Hospitalization, Other)
  Sender: FDA-Public Use
  Company Number: FR-ELI_LILLY_AND_COMPANY-FR201705007435

PATIENT
  Age: 82 Year
  Sex: Male

DRUGS (12)
  1. CARBOPLATINE [Suspect]
     Active Substance: CARBOPLATIN
     Indication: LUNG ADENOCARCINOMA
     Dosage: 251 MG, CYCLICAL
     Route: 042
     Dates: start: 20160920
  2. ALIMTA [Suspect]
     Active Substance: PEMETREXED DISODIUM
     Indication: LUNG ADENOCARCINOMA
     Dosage: 660 MG, CYCLICAL
     Route: 042
     Dates: start: 20160920
  3. SPECIAFOLDINE [Concomitant]
     Active Substance: FOLIC ACID
     Indication: PRODUCT USED FOR UNKNOWN INDICATION
     Dosage: 0.4 MG, DAILY
     Route: 065
  4. VITAMIN B12 [Concomitant]
     Active Substance: CYANOCOBALAMIN
     Indication: PRODUCT USED FOR UNKNOWN INDICATION
     Dosage: 2000 UG, EVERY SIX WEEKS
     Route: 065
  5. PRIMPERAN [Concomitant]
     Active Substance: METOCLOPRAMIDE HYDROCHLORIDE
     Indication: PRODUCT USED FOR UNKNOWN INDICATION
     Dosage: 10 MG, TID
     Route: 065
  6. LERCAN [Concomitant]
     Active Substance: LERCANIDIPINE
     Indication: PRODUCT USED FOR UNKNOWN INDICATION
     Dosage: 1 DF, DAILY
     Route: 065
  7. ATORVASTATINE                      /01326101/ [Concomitant]
     Active Substance: ATORVASTATIN
     Indication: PRODUCT USED FOR UNKNOWN INDICATION
     Dosage: 10 MG, DAILY
     Route: 065
  8. OMEZELIS [Concomitant]
     Indication: PRODUCT USED FOR UNKNOWN INDICATION
     Dosage: 1 DF, DAILY
     Route: 065
  9. AMAREL [Concomitant]
     Active Substance: GLIMEPIRIDE
     Indication: PRODUCT USED FOR UNKNOWN INDICATION
     Dosage: 1 MG, DAILY
     Route: 065
  10. BIPRETERAX                         /01421201/ [Concomitant]
     Active Substance: INDAPAMIDE\PERINDOPRIL ERBUMINE
     Indication: PRODUCT USED FOR UNKNOWN INDICATION
     Dosage: 1 DF, DAILY
     Route: 065
  11. KARDEGIC [Concomitant]
     Active Substance: ASPIRIN LYSINE
     Indication: PRODUCT USED FOR UNKNOWN INDICATION
     Dosage: 75 MG, DAILY
     Route: 065
  12. HEXAQUINE [Concomitant]
     Active Substance: NIAOULI OIL\QUININE BENZOATE\THIAMINE HYDROCHLORIDE
     Indication: PRODUCT USED FOR UNKNOWN INDICATION
     Dosage: 1 DF, UNK
     Route: 065

REACTIONS (15)
  - C-reactive protein increased [Unknown]
  - Productive cough [Unknown]
  - Blood creatinine increased [Unknown]
  - Nausea [Unknown]
  - Decreased appetite [Unknown]
  - Blood urea increased [Recovered/Resolved]
  - Cough [Unknown]
  - Glomerular filtration rate decreased [Recovered/Resolved]
  - Blood urea decreased [Unknown]
  - Off label use [Unknown]
  - Asthenia [Unknown]
  - Blood sodium decreased [Recovered/Resolved]
  - Pancytopenia [Recovered/Resolved]
  - Chills [Unknown]
  - Protein total decreased [Unknown]

NARRATIVE: CASE EVENT DATE: 20161017
